FAERS Safety Report 4686652-X (Version None)
Quarter: 2005Q2

REPORT INFORMATION
  Report Type: 
  Country: None (occurrence: None)
  Receive Date: 20050609
  Receipt Date: 20050601
  Transmission Date: 20051028
  Serious: Yes (Disabling)
  Sender: FDA-Public Use
  Company Number: 2005AP03159

PATIENT
  Age: 494 Month
  Sex: Male
  Weight: 90 kg

DRUGS (3)
  1. NEXIUM [Suspect]
     Route: 048
     Dates: start: 20050501, end: 20050601
  2. OMEPRAZOLE [Suspect]
     Route: 048
     Dates: start: 20020101, end: 20050501
  3. MEDICINALPRODUCT NOT SPECIFIED BY SENDER [Concomitant]

REACTIONS (1)
  - OPSOCLONUS MYOCLONUS [None]
